FAERS Safety Report 25272593 (Version 3)
Quarter: 2025Q2

REPORT INFORMATION
  Report Type: Spontaneous
  Country: US (occurrence: US)
  Receive Date: 20250506
  Receipt Date: 20250605
  Transmission Date: 20250717
  Serious: Yes (Hospitalization)
  Sender: JOHNSON AND JOHNSON
  Company Number: US-JNJFOC-20250436613

PATIENT
  Age: 75 Year
  Sex: Male
  Weight: 63.6 kg

DRUGS (1)
  1. CARVYKTI [Suspect]
     Active Substance: CILTACABTAGENE AUTOLEUCEL
     Indication: Plasma cell myeloma
     Route: 065
     Dates: start: 20250317

REACTIONS (2)
  - Facial paralysis [Recovering/Resolving]
  - Lymphocyte count decreased [Unknown]

NARRATIVE: CASE EVENT DATE: 20250423
